FAERS Safety Report 21775437 (Version 3)
Quarter: 2023Q2

REPORT INFORMATION
  Report Type: Report from Study
  Country: US (occurrence: US)
  Receive Date: 20221226
  Receipt Date: 20230413
  Transmission Date: 20230721
  Serious: Yes (Other)
  Sender: FDA-Public Use
  Company Number: US-ABBVIE-4249408

PATIENT
  Age: 83 Year
  Sex: Female

DRUGS (7)
  1. VENCLEXTA [Suspect]
     Active Substance: VENETOCLAX
     Indication: B-cell lymphoma
     Dosage: WEEK 3, 1X100MG TAB, FORM STRENGTH: 100 MILLIGRAM
     Route: 048
  2. VENCLEXTA [Suspect]
     Active Substance: VENETOCLAX
     Indication: B-cell lymphoma
     Dosage: WEEK 4, 2X100MG TABS, FORM STRENGTH: 100 MILLIGRAM
     Route: 048
  3. VENCLEXTA [Suspect]
     Active Substance: VENETOCLAX
     Indication: B-cell lymphoma
     Dosage: WEEK 1,  2 TIMES 10 MILLIGRAMS TABLET, FORM STRENGTH: 10 MILLIGRAM
     Route: 048
  4. VENCLEXTA [Suspect]
     Active Substance: VENETOCLAX
     Indication: B-cell lymphoma
     Dosage: WEEK 2, 1X50MILLIGRAMS TABLET, FORM STRENGTH: 50 MILLIGRAM
     Route: 048
  5. VENCLEXTA [Suspect]
     Active Substance: VENETOCLAX
     Indication: B-cell lymphoma
     Dosage: WITH WATER AND A MEAL AT THE SAME TIME EACH DAY, FORM STRENGTH: 100 MILLIGRAM
     Route: 048
  6. IMBRUVICA [Suspect]
     Active Substance: IBRUTINIB
     Indication: Product used for unknown indication
     Route: 048
  7. INFLUENZA VIRUS VACCINE [Concomitant]
     Active Substance: INFLUENZA VIRUS VACCINE
     Indication: Influenza immunisation
     Dates: start: 20220925, end: 20220925

REACTIONS (5)
  - Leukaemia [Unknown]
  - Influenza [Recovering/Resolving]
  - Adverse drug reaction [Unknown]
  - Peripheral swelling [Unknown]
  - Rash pruritic [Recovered/Resolved]

NARRATIVE: CASE EVENT DATE: 20221001
